FAERS Safety Report 7070544-5 (Version None)
Quarter: 2010Q4

REPORT INFORMATION
  Report Type: 
  Country: None (occurrence: None)
  Receive Date: 20101029
  Receipt Date: 20101020
  Transmission Date: 20110411
  Serious: Yes (Hospitalization)
  Sender: FDA-Public Use
  Company Number: US-ELI_LILLY_AND_COMPANY-US201010004762

PATIENT
  Sex: Female

DRUGS (19)
  1. GEMCITABINE HCL [Suspect]
     Indication: PANCREATIC CARCINOMA
     Dosage: 1000 MG/M2, UNKNOWN
     Route: 042
     Dates: start: 20100429
  2. GEMCITABINE HCL [Suspect]
     Dosage: UNK, UNKNOWN
     Route: 042
     Dates: start: 20100518
  3. PACLITAXEL [Suspect]
     Indication: PANCREATIC CARCINOMA
     Dosage: 125 MG/M2, WEEKLY (1/W)
     Route: 042
     Dates: start: 20100429
  4. PACLITAXEL [Suspect]
     Dosage: UNK, WEEKLY (1/W)
     Route: 042
     Dates: start: 20100518
  5. SYNTHROID [Concomitant]
     Indication: HYPOTHYROIDISM
     Route: 048
     Dates: start: 19750101
  6. SIMVASTATIN [Concomitant]
     Indication: PROPHYLAXIS
     Dosage: UNK, UNK
     Route: 048
  7. LOVENOX [Concomitant]
     Indication: THROMBOSIS
     Route: 058
     Dates: start: 20100326
  8. PERCOCET [Concomitant]
     Indication: PAIN
     Route: 048
     Dates: start: 20100101
  9. OXYCONTIN [Concomitant]
     Indication: PAIN
     Route: 048
     Dates: start: 20100428
  10. PREVACID [Concomitant]
     Indication: PROPHYLAXIS
     Route: 048
     Dates: start: 20100101
  11. SENOKOT [Concomitant]
     Indication: CONSTIPATION
     Route: 048
     Dates: start: 20100428
  12. ADVIL LIQUI-GELS [Concomitant]
     Indication: PAIN
     Route: 048
     Dates: start: 20100415
  13. COMPAZINE [Concomitant]
     Indication: NAUSEA
     Route: 048
     Dates: start: 20100428
  14. ZOFRAN [Concomitant]
     Indication: NAUSEA
     Route: 048
     Dates: start: 20100428
  15. CIPRO [Concomitant]
     Indication: URINARY TRACT INFECTION
     Dosage: UNK, UNK
     Route: 048
     Dates: start: 20100429
  16. DILAUDID [Concomitant]
     Indication: PAIN
     Route: 048
     Dates: start: 20100506
  17. ALOXI [Concomitant]
     Indication: PROPHYLAXIS
     Route: 042
     Dates: start: 20100429
  18. TYLENOL                                 /SCH/ [Concomitant]
     Indication: PROPHYLAXIS
     Route: 048
     Dates: start: 20100429
  19. DECADRON [Concomitant]
     Indication: PROPHYLAXIS
     Route: 042
     Dates: start: 20100504

REACTIONS (1)
  - DEHYDRATION [None]
